FAERS Safety Report 6104829-3 (Version None)
Quarter: 2009Q1

REPORT INFORMATION
  Report Type: 
  Country: None (occurrence: None)
  Receive Date: 20090306
  Receipt Date: 20090303
  Transmission Date: 20090719
  Serious: No
  Sender: FDA-Public Use
  Company Number: US-JNJFOC-20090301107

PATIENT
  Sex: Female
  Weight: 66.68 kg

DRUGS (3)
  1. DURAGESIC-100 [Suspect]
     Indication: NEURALGIA
     Dosage: USED TWO 75 UG/HR PATCHES
     Route: 062
  2. METHADONE HCL [Concomitant]
     Indication: NEURALGIA
     Route: 048
  3. ZANAFLEX [Concomitant]
     Indication: NEURALGIA
     Route: 048

REACTIONS (7)
  - APPLICATION SITE RASH [None]
  - APPLICATION SITE SCAR [None]
  - GASTROOESOPHAGEAL REFLUX DISEASE [None]
  - HYPERSOMNIA [None]
  - INAPPROPRIATE SCHEDULE OF DRUG ADMINISTRATION [None]
  - INSOMNIA [None]
  - WRONG TECHNIQUE IN DRUG USAGE PROCESS [None]
